FAERS Safety Report 9972995 (Version 1)
Quarter: 2014Q1

REPORT INFORMATION
  Report Type: Spontaneous
  Country: CO (occurrence: CO)
  Receive Date: 20140306
  Receipt Date: 20140306
  Transmission Date: 20141002
  Serious: Yes (Death, Hospitalization, Other)
  Sender: FDA-Public Use
  Company Number: CO-PFIZER INC-2014065028

PATIENT
  Age: 72 Year
  Sex: Male

DRUGS (1)
  1. LYRICA [Suspect]
     Indication: PAIN
     Dosage: 300 MG, AS NEEDED
     Route: 048

REACTIONS (5)
  - General physical health deterioration [Fatal]
  - Speech disorder [Fatal]
  - Hypophagia [Fatal]
  - Bladder cancer [Unknown]
  - Blood urine present [Unknown]
